FAERS Safety Report 21252464 (Version 3)
Quarter: 2022Q4

REPORT INFORMATION
  Report Type: Spontaneous
  Country: US (occurrence: US)
  Receive Date: 20220825
  Receipt Date: 20221109
  Transmission Date: 20230112
  Serious: No
  Sender: FDA-Public Use
  Company Number: US-ORGANON-O2208USA001426

PATIENT
  Sex: Female
  Weight: 105.67 kg

DRUGS (1)
  1. NEXPLANON [Suspect]
     Active Substance: ETONOGESTREL
     Indication: Contraception
     Dosage: 1 IMPLANT OF 68 MG IN ARM
     Route: 059
     Dates: start: 20220721, end: 20220809

REACTIONS (8)
  - Erythema [Unknown]
  - Neuralgia [Unknown]
  - Staphylococcal infection [Unknown]
  - Mobility decreased [Unknown]
  - Implant site infection [Unknown]
  - Pain in extremity [Unknown]
  - Pain [Unknown]
  - Complication associated with device [Recovered/Resolved]

NARRATIVE: CASE EVENT DATE: 20220101
